FAERS Safety Report 8418861-8 (Version None)
Quarter: 2012Q2

REPORT INFORMATION
  Report Type: 
  Country: None (occurrence: None)
  Receive Date: 20120607
  Receipt Date: 20120405
  Transmission Date: 20120825
  Serious: Yes (Hospitalization)
  Sender: FDA-Public Use
  Company Number: US-ROCHE-1057756

PATIENT
  Age: 28 Year

DRUGS (4)
  1. PRED [Concomitant]
  2. ACTEMRA [Suspect]
     Indication: RHEUMATOID ARTHRITIS
  3. STEROIDS NOS [Concomitant]
  4. ARAVA [Concomitant]

REACTIONS (4)
  - INFECTION [None]
  - OESOPHAGEAL CANDIDIASIS [None]
  - LUNG INFILTRATION [None]
  - ACUTE RESPIRATORY FAILURE [None]
